FAERS Safety Report 6448892-9 (Version None)
Quarter: 2009Q4

REPORT INFORMATION
  Report Type: 
  Country: None (occurrence: None)
  Receive Date: 20091120
  Receipt Date: 20091112
  Transmission Date: 20100525
  Serious: Yes (Other)
  Sender: FDA-Public Use
  Company Number: FR-PFIZER INC-2009296526

PATIENT
  Age: 62 Year
  Sex: Female

DRUGS (5)
  1. SALAZOPYRIN [Suspect]
     Dosage: 500 MG, 1X/DAY
     Route: 048
     Dates: start: 20090907, end: 20090913
  2. SALAZOPYRIN [Suspect]
     Dosage: 1000 MG IN THE MORNING AND 500 MG IN THE EVENING
     Route: 048
     Dates: start: 20090914, end: 20090920
  3. SALAZOPYRIN [Suspect]
     Dosage: 1000 MG, 2X/DAY
     Route: 048
     Dates: start: 20090921, end: 20091026
  4. VOLTAREN [Concomitant]
     Dosage: UNK
  5. NEXIUM [Concomitant]
     Dosage: UNK

REACTIONS (1)
  - NEUTROPENIA [None]
